FAERS Safety Report 12349795 (Version 1)
Quarter: 2016Q2

REPORT INFORMATION
  Report Type: Spontaneous
  Country: US (occurrence: US)
  Receive Date: 20160510
  Receipt Date: 20160510
  Transmission Date: 20160815
  Serious: No
  Sender: FDA-Public Use
  Company Number: PHHY2016US063889

PATIENT
  Sex: Female

DRUGS (1)
  1. VOLTAREN [Suspect]
     Active Substance: DICLOFENAC SODIUM
     Indication: LIGAMENT SPRAIN
     Dosage: 2 G, BID
     Route: 061
     Dates: start: 201604, end: 201604

REACTIONS (3)
  - Mouth haemorrhage [Recovered/Resolved]
  - Incorrect dose administered [Unknown]
  - Off label use [Unknown]
